FAERS Safety Report 20834590 (Version 1)
Quarter: 2022Q2

REPORT INFORMATION
  Report Type: 
  Country: None (occurrence: None)
  Receive Date: 20220516
  Receipt Date: 20220516
  Transmission Date: 20220720
  Serious: No
  Sender: FDA-Public Use
  Company Number: KR-ROCHE-2902067

PATIENT
  Weight: 70.5 kg

DRUGS (20)
  1. ATEZOLIZUMAB [Suspect]
     Active Substance: ATEZOLIZUMAB
     Dosage: ON 18/AUG/2021, HE RECEIVED MOST RECENT DOSE OF ATEZOLIZUMAB (1200 MG) PRIOR TO ONSET OF SERIOUS ADV
     Dates: start: 20200916
  2. BEVACIZUMAB [Suspect]
     Active Substance: BEVACIZUMAB
     Dosage: ON 18/AUG/2021, HE RECEIVED MOST RECENT DOSE OF BEVACIZUMAB (990 MG) PRIOR TO ONSET OF SERIOUS ADVER
     Dates: start: 20200916
  3. ENTECAVIR [Concomitant]
     Active Substance: ENTECAVIR
     Dates: start: 2013
  4. LINAGLIPTIN\METFORMIN HYDROCHLORIDE [Concomitant]
     Active Substance: LINAGLIPTIN\METFORMIN HYDROCHLORIDE
     Dosage: 2.5/850MG
     Dates: start: 20200717
  5. LANTUS SOLOSTAR [Concomitant]
     Active Substance: INSULIN GLARGINE
     Dates: start: 20200831
  6. FIMASARTAN POTASSIUM TRIHYDRATE [Concomitant]
     Active Substance: FIMASARTAN POTASSIUM TRIHYDRATE
     Dates: start: 20201120
  7. CARVEDILOL [Concomitant]
     Active Substance: CARVEDILOL
     Dates: start: 20210326
  8. FIASP [Concomitant]
     Active Substance: INSULIN ASPART
     Dates: start: 20210611
  9. ESROBAN [Concomitant]
     Dates: start: 20210622
  10. FAMSTER [Concomitant]
     Dates: start: 20210727, end: 20210803
  11. COVID-19 VACCINE [Concomitant]
     Dates: start: 20210820, end: 20210820
  12. XANAX [Concomitant]
     Active Substance: ALPRAZOLAM
     Dates: start: 20210903
  13. MINOCIN [Concomitant]
     Active Substance: MINOCYCLINE HYDROCHLORIDE
     Dates: start: 20210901
  14. SULFAMETHOXAZOLE\TRIMETHOPRIM [Concomitant]
     Active Substance: SULFAMETHOXAZOLE\TRIMETHOPRIM
     Dates: start: 20210908
  15. PENIRAMIN [Concomitant]
     Dates: start: 20210727, end: 20210803
  16. VASELINE PURE [Concomitant]
     Active Substance: PETROLATUM
     Dates: start: 20210727
  17. DIFUCO [Concomitant]
     Dates: start: 20210727
  18. ULTRACET [Concomitant]
     Active Substance: ACETAMINOPHEN\TRAMADOL HYDROCHLORIDE
     Dates: start: 20210712
  19. GABAPENTIN [Concomitant]
     Active Substance: GABAPENTIN
     Dates: start: 20210712
  20. PREDNISOLONE [Concomitant]
     Active Substance: PREDNISOLONE
     Dates: start: 20210727, end: 20210803

REACTIONS (1)
  - Pyoderma gangrenosum [None]

NARRATIVE: CASE EVENT DATE: 20210830
